FAERS Safety Report 13978439 (Version 1)
Quarter: 2017Q3

REPORT INFORMATION
  Report Type: Spontaneous
  Country: US (occurrence: US)
  Receive Date: 20170915
  Receipt Date: 20170915
  Transmission Date: 20171128
  Serious: Yes (Hospitalization, Other)
  Sender: FDA-Public Use
  Company Number: US-BAYER-2017-131783

PATIENT
  Age: 71 Year
  Sex: Male
  Weight: 72.3 kg

DRUGS (13)
  1. HCT [Concomitant]
     Active Substance: HYDROCHLOROTHIAZIDE
  2. MIRTAZAPINE. [Concomitant]
     Active Substance: MIRTAZAPINE
  3. NADOLOL. [Concomitant]
     Active Substance: NADOLOL
  4. LISINOPRIL. [Concomitant]
     Active Substance: LISINOPRIL
  5. ZOLOFT [Concomitant]
     Active Substance: SERTRALINE HYDROCHLORIDE
  6. BREO ELLIPTA [Concomitant]
     Active Substance: FLUTICASONE FUROATE\VILANTEROL TRIFENATATE
  7. NEXAVAR [Suspect]
     Active Substance: SORAFENIB
     Indication: HEPATOCELLULAR CARCINOMA
     Dosage: 200 MG, QD
     Route: 048
     Dates: start: 20170617, end: 20170705
  8. NEXAVAR [Suspect]
     Active Substance: SORAFENIB
     Indication: HEPATOCELLULAR CARCINOMA
     Dosage: 200 MG, BID
     Dates: start: 20170512, end: 201706
  9. ALDACTONE [Concomitant]
     Active Substance: SPIRONOLACTONE
  10. PHYTONADIONE. [Concomitant]
     Active Substance: PHYTONADIONE
  11. PRAVASTATIN. [Concomitant]
     Active Substance: PRAVASTATIN
  12. OMEPRAZOLE. [Concomitant]
     Active Substance: OMEPRAZOLE
  13. FENOFIBRATE. [Concomitant]
     Active Substance: FENOFIBRATE

REACTIONS (11)
  - Back pain [None]
  - Metastases to spinal cord [Recovering/Resolving]
  - Abdominal discomfort [None]
  - Off label use [None]
  - Ascites [None]
  - Spinal cord compression [None]
  - Cancer pain [None]
  - Abdominal pain [None]
  - Hepatocellular carcinoma [None]
  - Thrombosis [None]
  - Hepatic failure [None]

NARRATIVE: CASE EVENT DATE: 20170705
